FAERS Safety Report 19621485 (Version 1)
Quarter: 2021Q3

REPORT INFORMATION
  Report Type: Spontaneous
  Country: GB (occurrence: GB)
  Receive Date: 20210728
  Receipt Date: 20210728
  Transmission Date: 20211014
  Serious: Yes (Hospitalization)
  Sender: FDA-Public Use
  Company Number: GB-TEVA-2021-GB-1935501

PATIENT
  Age: 38 Year
  Sex: Female
  Weight: 75 kg

DRUGS (5)
  1. AMITRIPTYLINE CHLORIDE [Suspect]
     Active Substance: AMITRIPTYLINE
     Dosage: 30 MG
     Route: 048
     Dates: start: 20210701
  2. MIRTAZAPINE. [Suspect]
     Active Substance: MIRTAZAPINE
     Dosage: 45 MILLIGRAM DAILY; AT NIGHT
     Route: 048
     Dates: start: 20210701
  3. DIAZEPAM. [Suspect]
     Active Substance: DIAZEPAM
     Dosage: 2 MG
     Route: 048
     Dates: start: 20210701
  4. GABAPENTIN. [Suspect]
     Active Substance: GABAPENTIN
     Dosage: 900 MILLIGRAM DAILY;
     Route: 048
     Dates: start: 20210701
  5. ESCITALOPRAM OXALATE. [Suspect]
     Active Substance: ESCITALOPRAM OXALATE
     Dosage: 15 MG
     Dates: start: 20210701

REACTIONS (2)
  - Depressed level of consciousness [Unknown]
  - Intentional overdose [Recovering/Resolving]

NARRATIVE: CASE EVENT DATE: 20210701
